FAERS Safety Report 16910849 (Version 1)
Quarter: 2019Q4

REPORT INFORMATION
  Report Type: Spontaneous
  Country: US (occurrence: US)
  Receive Date: 20191012
  Receipt Date: 20191012
  Transmission Date: 20200122
  Serious: No
  Sender: FDA-Public Use
  Company Number: US-BION-007725

PATIENT
  Sex: Female

DRUGS (2)
  1. BION PHARMA^S PROGESTERONE 100MG CAPSULES [Suspect]
     Active Substance: PROGESTERONE
     Indication: HORMONE REPLACEMENT THERAPY
     Dosage: 3 X100 MG CAPSULES
     Route: 048
     Dates: start: 20181212
  2. MINIVELLE [Concomitant]
     Active Substance: ESTRADIOL

REACTIONS (6)
  - Vaginal haemorrhage [Unknown]
  - Insomnia [Unknown]
  - Myalgia [Unknown]
  - Drug ineffective [Not Recovered/Not Resolved]
  - Product physical consistency issue [Unknown]
  - Dizziness [Unknown]
